FAERS Safety Report 5791735-7 (Version None)
Quarter: 2008Q2

REPORT INFORMATION
  Report Type: 
  Country: None (occurrence: None)
  Receive Date: 20080625
  Receipt Date: 20080414
  Transmission Date: 20081010
  Serious: No
  Sender: FDA-Public Use
  Company Number: US-WYE-H03791508

PATIENT

DRUGS (1)
  1. TORISEL [Suspect]

REACTIONS (1)
  - MUCOSAL INFLAMMATION [None]
